FAERS Safety Report 25621290 (Version 2)
Quarter: 2025Q3

REPORT INFORMATION
  Report Type: Spontaneous
  Country: CA (occurrence: CA)
  Receive Date: 20250730
  Receipt Date: 20250927
  Transmission Date: 20251021
  Serious: Yes (Hospitalization, Other)
  Sender: CELLTRION
  Company Number: CA-PFIZER INC-202500149930

PATIENT

DRUGS (8)
  1. INFLECTRA [Suspect]
     Active Substance: INFLIXIMAB-DYYB
     Indication: Colitis ulcerative
     Dates: start: 20230427, end: 20230809
  2. INFLECTRA [Suspect]
     Active Substance: INFLIXIMAB-DYYB
     Dates: start: 20250619
  3. ACETAMINOPHEN [Concomitant]
     Active Substance: ACETAMINOPHEN
  4. ASPIRIN [Concomitant]
     Active Substance: ASPIRIN
  5. CEPHALEXIN [Concomitant]
     Active Substance: CEPHALEXIN
  6. CELECOXIB [Concomitant]
     Active Substance: CELECOXIB
  7. HYDROMORPHONE [Concomitant]
     Active Substance: HYDROMORPHONE
  8. TRAMADOL [Concomitant]
     Active Substance: TRAMADOL

REACTIONS (1)
  - Hip arthroplasty [Unknown]

NARRATIVE: CASE EVENT DATE: 20250722
